FAERS Safety Report 7198143-5 (Version None)
Quarter: 2010Q4

REPORT INFORMATION
  Report Type: 
  Country: None (occurrence: None)
  Receive Date: 20101223
  Receipt Date: 20101223
  Transmission Date: 20110411
  Serious: Yes (Hospitalization)
  Sender: FDA-Public Use
  Company Number: None

PATIENT
  Age: 60 Year
  Sex: Male
  Weight: 70.3 kg

DRUGS (2)
  1. LISINOPRIL [Suspect]
     Indication: HYPERTENSION
     Dosage: 20 MG EVERY DAY
     Dates: start: 20011114, end: 20101020
  2. LISINOPRIL [Suspect]
     Indication: RENAL FAILURE CHRONIC
     Dosage: 20 MG EVERY DAY
     Dates: start: 20011114, end: 20101020

REACTIONS (1)
  - HYPERKALAEMIA [None]
